FAERS Safety Report 7665493-5 (Version None)
Quarter: 2011Q3

REPORT INFORMATION
  Report Type: 
  Country: None (occurrence: None)
  Receive Date: 20110806
  Receipt Date: 20110321
  Transmission Date: 20111222
  Serious: No
  Sender: FDA-Public Use
  Company Number: US-ABBOTT-11P-163-0713878-00

PATIENT
  Sex: Male
  Weight: 90.8 kg

DRUGS (12)
  1. NIASPAN [Suspect]
     Dates: start: 20101101
  2. NIASPAN [Suspect]
     Indication: BLOOD CHOLESTEROL INCREASED
     Dates: start: 20100901, end: 20100901
  3. LIPITOR [Concomitant]
     Indication: BLOOD CHOLESTEROL INCREASED
  4. NORVASC [Concomitant]
     Indication: HYPERTENSION
  5. ASPIRIN [Concomitant]
     Indication: CARDIAC DISORDER
  6. NIASPAN [Suspect]
     Indication: CORONARY ARTERY DISEASE
     Dates: start: 20101001, end: 20101001
  7. ALLOPURINOL [Concomitant]
     Indication: GOUT
  8. NIASPAN [Suspect]
     Dates: start: 20101101, end: 20101101
  9. MICARDIS [Concomitant]
     Indication: HYPERTENSION
  10. CO Q-10 [Concomitant]
     Indication: VITAMIN SUPPLEMENTATION
  11. SELENIUM [Concomitant]
     Indication: MINERAL SUPPLEMENTATION
  12. VITAMIN D [Concomitant]
     Indication: VITAMIN SUPPLEMENTATION

REACTIONS (2)
  - BLOOD CALCIUM ABNORMAL [None]
  - PRURITUS GENERALISED [None]
